FAERS Safety Report 12692830 (Version 2)
Quarter: 2016Q3

REPORT INFORMATION
  Report Type: Spontaneous
  Country: GB (occurrence: GB)
  Receive Date: 20160829
  Receipt Date: 20160907
  Transmission Date: 20161109
  Serious: Yes (Other)
  Sender: FDA-Public Use
  Company Number: GB-ACCORD-043513

PATIENT
  Age: 71 Year
  Sex: Female
  Weight: 53 kg

DRUGS (23)
  1. ASPIRIN. [Concomitant]
     Active Substance: ASPIRIN
     Dates: start: 20160422
  2. FLUCONAZOLE. [Concomitant]
     Active Substance: FLUCONAZOLE
     Dates: start: 20160705, end: 20160712
  3. MST CONTINUS [Concomitant]
     Active Substance: MORPHINE SULFATE
     Dates: start: 20160422
  4. PARACETAMOL [Concomitant]
     Active Substance: ACETAMINOPHEN
     Dates: start: 20160422
  5. PRAVASTATIN. [Concomitant]
     Active Substance: PRAVASTATIN
     Dosage: AT NIGHT
     Dates: start: 20160422
  6. FOSTAIR [Concomitant]
     Active Substance: BECLOMETHASONE\FORMOTEROL
     Dosage: 2 PUFFS
     Dates: start: 20160422
  7. LANSOPRAZOLE. [Concomitant]
     Active Substance: LANSOPRAZOLE
     Dates: start: 20160422
  8. ORAMORPH [Concomitant]
     Active Substance: MORPHINE SULFATE
     Dosage: FOUR TIMES A DAY
     Dates: start: 20160422
  9. DOXYCYCLINE. [Concomitant]
     Active Substance: DOXYCYCLINE
     Dosage: TWO TO BE TAKEN NOW THEN ONE DAILY
     Dates: start: 20160422
  10. LACTULOSE. [Concomitant]
     Active Substance: LACTULOSE
     Dosage: 15 ML TWICE A DAY MAXIMUM
     Dates: start: 20160422
  11. TEMAZEPAM. [Concomitant]
     Active Substance: TEMAZEPAM
     Dates: start: 20160422
  12. VENTOLIN [Concomitant]
     Active Substance: ALBUTEROL SULFATE
     Route: 055
     Dates: start: 20160422
  13. CODEINE [Concomitant]
     Active Substance: CODEINE
     Dates: start: 20160708, end: 20160718
  14. CYCLIZINE [Concomitant]
     Active Substance: CYCLIZINE
     Dosage: 3 TIMES DAILY
     Dates: start: 20160422
  15. ERYTHROMYCIN. [Concomitant]
     Active Substance: ERYTHROMYCIN
     Dates: start: 20160708, end: 20160715
  16. LOPERAMIDE [Concomitant]
     Active Substance: LOPERAMIDE
     Dosage: TAKE AS DIRECTED
     Dates: start: 20160422
  17. PREDNISOLONE. [Concomitant]
     Active Substance: PREDNISOLONE
     Dates: start: 20160422
  18. TIOTROPIUM/TIOTROPIUM BROMIDE [Concomitant]
     Route: 055
     Dates: start: 20160422
  19. NYSTAN [Concomitant]
     Active Substance: NYSTATIN
     Dates: start: 20160422
  20. ACIDEX [Concomitant]
     Active Substance: CALCIUM CARBONATE\SODIUM ALGINATE\SODIUM BICARBONATE
     Dosage: AFTER MEALS AND AT BEDTIME WHE..
     Dates: start: 20160422
  21. LISINOPRIL. [Suspect]
     Active Substance: LISINOPRIL
     Indication: PRODUCT USED FOR UNKNOWN INDICATION
     Route: 048
     Dates: start: 20160809
  22. LEVOTHYROXINE. [Concomitant]
     Active Substance: LEVOTHYROXINE
     Dates: start: 20160422
  23. QUINIDINE [Concomitant]
     Active Substance: QUINIDINE
     Dosage: USE AS DIRECTED
     Dates: start: 20160422

REACTIONS (2)
  - Lip swelling [Recovering/Resolving]
  - Hypersensitivity [Unknown]

NARRATIVE: CASE EVENT DATE: 20160809
